FAERS Safety Report 7270160-6 (Version None)
Quarter: 2011Q1

REPORT INFORMATION
  Report Type: 
  Country: None (occurrence: None)
  Receive Date: 20110202
  Receipt Date: 20110126
  Transmission Date: 20110831
  Serious: Yes (Hospitalization)
  Sender: FDA-Public Use
  Company Number: DE-TEVA-264702GER

PATIENT
  Age: 86 Year
  Sex: Female
  Weight: 73 kg

DRUGS (7)
  1. MARCUMAR [Concomitant]
  2. ALBUTEROL [Concomitant]
  3. LOSARTAN POTASSIUM AND HYDROCHLOROTHIAZIDE [Concomitant]
     Dosage: LOSARTAN 50 MG / HYDROCHLOROTHIAZIDE  125MG
     Route: 048
  4. VIANI [Concomitant]
     Route: 048
     Dates: start: 20100531
  5. AMIODARONE [Suspect]
     Indication: ATRIAL FIBRILLATION
     Route: 048
     Dates: start: 20041201, end: 20100707
  6. THYRONAJOD [Concomitant]
     Route: 048
  7. TOREM [Concomitant]
     Route: 048

REACTIONS (3)
  - COUGH [None]
  - EOSINOPHILIA MYALGIA SYNDROME [None]
  - INTERSTITIAL LUNG DISEASE [None]
